FAERS Safety Report 5041919-0 (Version None)
Quarter: 2006Q2

REPORT INFORMATION
  Report Type: 
  Country: None (occurrence: None)
  Receive Date: 20060627
  Receipt Date: 20060602
  Transmission Date: 20061013
  Serious: Yes (Hospitalization)
  Sender: FDA-Public Use
  Company Number: HQWYE951405JUN06

PATIENT
  Age: 54 Year
  Sex: Male
  Weight: 90 kg

DRUGS (26)
  1. NEORAL [Suspect]
     Indication: PROPHYLAXIS AGAINST TRANSPLANT REJECTION
     Dosage: 100 MG 2X PER 1 DAY, ORAL; 100 MG 1X PER 1 DAY, ORAL; 75 MG 1X PER 1 DAY, ORAL
     Route: 048
     Dates: start: 20060503, end: 20060530
  2. NEORAL [Suspect]
     Indication: PROPHYLAXIS AGAINST TRANSPLANT REJECTION
     Dosage: 100 MG 2X PER 1 DAY, ORAL; 100 MG 1X PER 1 DAY, ORAL; 75 MG 1X PER 1 DAY, ORAL
     Route: 048
     Dates: start: 20060531, end: 20060531
  3. NEORAL [Suspect]
     Indication: PROPHYLAXIS AGAINST TRANSPLANT REJECTION
     Dosage: 100 MG 2X PER 1 DAY, ORAL; 100 MG 1X PER 1 DAY, ORAL; 75 MG 1X PER 1 DAY, ORAL
     Route: 048
     Dates: start: 20060601
  4. NEORAL [Suspect]
  5. ARANESP [Concomitant]
  6. NEURONTIN [Concomitant]
  7. LEVAQUIN [Concomitant]
  8. COLACE (DOCUSATE SODIUM) [Concomitant]
  9. OS-CAL (CALCIUM/ERGOCALCIFEROL) [Concomitant]
  10. MYCELEX [Concomitant]
  11. SODIUM POLYSTYRENE SULFONATE (SODIUM POLYSTYRENE SULFONATE) [Concomitant]
  12. NOVOLIN R [Concomitant]
  13. VANCOMYCIN [Concomitant]
  14. CELLCEPT [Concomitant]
  15. ASPIRIN [Concomitant]
  16. PREDNISONE TAB [Concomitant]
  17. BACTRIM [Concomitant]
  18. GLIPIZIDE [Concomitant]
  19. TOPROL-XL [Concomitant]
  20. NORVASC [Concomitant]
  21. LIPITOR [Concomitant]
  22. CLONIDINE [Concomitant]
  23. PROTONIX [Concomitant]
  24. VALCYTE [Concomitant]
  25. NORCO [Concomitant]
  26. PIPERACILLIN SODIUM W/TAZOBACTAM SODIUM (PIPERACILLIN SODIUM/TAZOBACTA [Concomitant]

REACTIONS (4)
  - POST PROCEDURAL COMPLICATION [None]
  - POST PROCEDURAL HAEMATOMA [None]
  - SEROMA [None]
  - WOUND DEHISCENCE [None]
